FAERS Safety Report 19558952 (Version 3)
Quarter: 2024Q1

REPORT INFORMATION
  Report Type: Spontaneous
  Country: US (occurrence: US)
  Receive Date: 20210714
  Receipt Date: 20240116
  Transmission Date: 20240409
  Serious: No
  Sender: FDA-Public Use
  Company Number: US-SK LIFE SCIENCE, INC-SKPVG-2020-000560

PATIENT

DRUGS (8)
  1. XCOPRI [Suspect]
     Active Substance: CENOBAMATE
     Indication: Seizure
     Dosage: 12.5 MILLIGRAM
     Route: 048
     Dates: start: 2020
  2. XCOPRI [Suspect]
     Active Substance: CENOBAMATE
     Indication: Epilepsy
     Dosage: 200 MILLIGRAM, QHS
     Route: 048
     Dates: start: 2020
  3. XCOPRI [Suspect]
     Active Substance: CENOBAMATE
     Indication: Focal dyscognitive seizures
     Dosage: 250 MILLIGRAM, QD AT NIGHT
     Route: 048
     Dates: end: 20210119
  4. XCOPRI [Suspect]
     Active Substance: CENOBAMATE
     Dosage: TWO 150MG TABLETS ONCE DAILY AT NIGHT BEFORE BED
     Route: 048
     Dates: end: 20230512
  5. XCOPRI [Suspect]
     Active Substance: CENOBAMATE
     Dosage: 300 MILLIGRAM, QD
     Route: 048
     Dates: end: 20230512
  6. XCOPRI [Suspect]
     Active Substance: CENOBAMATE
     Dosage: 200 MILLIGRAM
     Dates: start: 202305
  7. ONFI [Concomitant]
     Active Substance: CLOBAZAM
     Indication: Product used for unknown indication
     Dosage: 20 MILLIGRAM
     Route: 065
  8. CLOBAZAM [Concomitant]
     Active Substance: CLOBAZAM
     Indication: Product used for unknown indication
     Dosage: 30MG TABLETS OF CLOBAZAM ONCE AT NIGHT
     Route: 065

REACTIONS (11)
  - Seizure [Not Recovered/Not Resolved]
  - Product dose omission issue [Recovered/Resolved]
  - Seizure [Not Recovered/Not Resolved]
  - Product use issue [Recovered/Resolved]
  - Product dose omission issue [Recovered/Resolved]
  - Incorrect dose administered [Not Recovered/Not Resolved]
  - Feeling abnormal [Unknown]
  - Abnormal dreams [Unknown]
  - Terminal insomnia [Unknown]
  - Middle insomnia [Unknown]
  - Somnolence [Not Recovered/Not Resolved]

NARRATIVE: CASE EVENT DATE: 20200101
